FAERS Safety Report 8017736-6 (Version None)
Quarter: 2012Q1

REPORT INFORMATION
  Report Type: 
  Country: None (occurrence: None)
  Receive Date: 20120103
  Receipt Date: 20111228
  Transmission Date: 20120608
  Serious: No
  Sender: FDA-Public Use
  Company Number: US-PFIZER INC-2011315814

PATIENT
  Sex: Male
  Weight: 95.238 kg

DRUGS (1)
  1. DILANTIN [Suspect]
     Indication: CONVULSION
     Dosage: 100MG + 100MG + 200MG
     Route: 048

REACTIONS (2)
  - HYPERTENSION [None]
  - BLOOD CHOLESTEROL INCREASED [None]
